FAERS Safety Report 9547424 (Version 1)
Quarter: 2013Q2

REPORT INFORMATION
  Report Type: Spontaneous
  Country: US (occurrence: None)
  Receive Date: 20130606
  Receipt Date: 20130606
  Transmission Date: 20140414
  Serious: Yes (Hospitalization, Other)
  Sender: FDA-Public Use
  Company Number: 163-POMAL-13043792

PATIENT
  Age: 49 Year
  Sex: Male

DRUGS (6)
  1. POMALYST (POMALIDOMIDE) (CAPSULES) [Suspect]
     Indication: PLASMA CELL MYELOMA
     Dosage: 4 MG, 21 AND 28 D, PO
     Route: 048
     Dates: start: 20130320, end: 20130330
  2. OXYCODONE [Concomitant]
  3. ASA (ACETYLSALICYLIC ACID) [Concomitant]
  4. DEXAMETHASONE [Concomitant]
  5. FISH OIL [Concomitant]
  6. MVI [Concomitant]

REACTIONS (1)
  - Blood bilirubin increased [None]
